FAERS Safety Report 6665870-5 (Version None)
Quarter: 2010Q2

REPORT INFORMATION
  Report Type: 
  Country: None (occurrence: None)
  Receive Date: 20100402
  Receipt Date: 20100330
  Transmission Date: 20101027
  Serious: Yes (Death, Hospitalization)
  Sender: FDA-Public Use
  Company Number: IN-ELI_LILLY_AND_COMPANY-IN201003008574

PATIENT
  Age: 40 Year
  Sex: Female

DRUGS (2)
  1. XIGRIS [Suspect]
     Indication: SEPTIC SHOCK
     Dosage: FULL 96 HOUR INFUSION, UNKNOWN
     Route: 042
     Dates: start: 20100301, end: 20100301
  2. ANTIBIOTICS [Concomitant]
     Dosage: UNK, UNKNOWN
     Route: 065
     Dates: start: 20100301

REACTIONS (2)
  - DEATH [None]
  - INFLUENZA [None]
